FAERS Safety Report 6569198-3 (Version None)
Quarter: 2010Q1

REPORT INFORMATION
  Report Type: 
  Country: None (occurrence: None)
  Receive Date: 20100203
  Receipt Date: 20100128
  Transmission Date: 20100710
  Serious: Yes (Death, Hospitalization, Other)
  Sender: FDA-Public Use
  Company Number: FR-MERCK-1001FRA00079

PATIENT
  Age: 51 Year
  Sex: Male

DRUGS (2)
  1. INVANZ [Suspect]
     Indication: MEDIASTINITIS
     Route: 042
  2. PRIMAXIN [Suspect]
     Indication: MEDIASTINITIS
     Route: 042

REACTIONS (3)
  - CONVULSION [None]
  - DRUG RESISTANCE [None]
  - MULTI-ORGAN FAILURE [None]
